FAERS Safety Report 8605233-6 (Version None)
Quarter: 2012Q3

REPORT INFORMATION
  Report Type: 
  Country: None (occurrence: None)
  Receive Date: 20120820
  Receipt Date: 20120814
  Transmission Date: 20120928
  Serious: Yes (Other)
  Sender: FDA-Public Use
  Company Number: PHHY2012BR061949

PATIENT
  Sex: Female
  Weight: 65 kg

DRUGS (11)
  1. CLONIDINE HYDROCHLORIDE [Concomitant]
     Indication: HYPERTENSION
     Dosage: 1 DF, QD
     Route: 048
  2. BAMIFIX [Concomitant]
     Dosage: 1 DF, QD
     Route: 048
  3. FLUOXETINE HCL [Concomitant]
     Indication: ANXIETY
     Dosage: 1 DF, QD
  4. ONBREZ [Suspect]
     Indication: PULMONARY EMBOLISM
     Dosage: 1 DF, QD (AT NIGHT)
  5. DIGOXIN [Concomitant]
     Indication: CARDIAC DISORDER
     Dosage: 12.5 MG, QD
     Route: 048
  6. LASIX [Concomitant]
     Indication: OEDEMA PERIPHERAL
     Dosage: 1 DF, QD (IN MORNING)
  7. SPIRONOLACTONE [Concomitant]
     Indication: CARDIAC DISORDER
     Dosage: 100 MG, QD
     Route: 048
  8. DILTIAZEM HCL [Concomitant]
     Dosage: 30 MG, QD
     Route: 048
  9. DIOVAN HCT [Concomitant]
  10. ONBREZ [Suspect]
     Dosage: 300 UG, QD
     Dates: end: 20120716
  11. CLONAZEPAM [Concomitant]
     Indication: ANXIETY
     Dosage: 1 DF, QD

REACTIONS (7)
  - URINARY TRACT INFECTION [None]
  - HAEMATURIA [None]
  - WHEEZING [None]
  - WEIGHT DECREASED [None]
  - MALAISE [None]
  - URINARY INCONTINENCE [None]
  - VOMITING [None]
